FAERS Safety Report 4746154-9 (Version None)
Quarter: 2005Q3

REPORT INFORMATION
  Report Type: 
  Country: None (occurrence: None)
  Receive Date: 20050816
  Receipt Date: 20050801
  Transmission Date: 20060218
  Serious: Yes (Hospitalization)
  Sender: FDA-Public Use
  Company Number: 199764

PATIENT
  Age: 45 Year
  Sex: Female

DRUGS (2)
  1. AVONEX [Suspect]
     Indication: MULTIPLE SCLEROSIS
     Dosage: 30 UW; QW; IM
     Route: 030
     Dates: start: 19971031, end: 20030801
  2. AVONEX [Suspect]
     Indication: MULTIPLE SCLEROSIS
     Dosage: 30 UW; QW; IM
     Route: 030
     Dates: start: 20030819

REACTIONS (4)
  - BLADDER DISORDER [None]
  - CONDITION AGGRAVATED [None]
  - GASTROINTESTINAL DISORDER [None]
  - MULTIPLE SCLEROSIS [None]
